FAERS Safety Report 7966897-3 (Version None)
Quarter: 2011Q4

REPORT INFORMATION
  Report Type: 
  Country: None (occurrence: None)
  Receive Date: 20111209
  Receipt Date: 20111205
  Transmission Date: 20120403
  Serious: Yes (Hospitalization, Other)
  Sender: FDA-Public Use
  Company Number: US-PFIZER INC-2011153096

PATIENT
  Sex: Male

DRUGS (3)
  1. NORCO [Concomitant]
     Indication: BACK PAIN
     Dosage: UNK
     Dates: start: 20030601
  2. CHANTIX [Suspect]
     Indication: SMOKING CESSATION THERAPY
     Dosage: STARTER PACK
     Route: 048
     Dates: start: 20061001, end: 20061115
  3. VALIUM [Concomitant]
     Indication: MUSCLE RELAXANT THERAPY
     Dosage: UNK
     Dates: start: 20050701

REACTIONS (5)
  - DELUSIONAL PERCEPTION [None]
  - SLEEP TERROR [None]
  - THINKING ABNORMAL [None]
  - INTENTIONAL OVERDOSE [None]
  - SUICIDE ATTEMPT [None]
